FAERS Safety Report 5392252-9 (Version None)
Quarter: 2007Q3

REPORT INFORMATION
  Report Type: 
  Country: None (occurrence: None)
  Receive Date: 20070720
  Receipt Date: 20070711
  Transmission Date: 20080115
  Serious: Yes (Hospitalization)
  Sender: FDA-Public Use
  Company Number: FR-GENENTECH-244444

PATIENT
  Sex: Female
  Weight: 74 kg

DRUGS (1)
  1. RITUXAN [Suspect]
     Indication: RHEUMATOID ARTHRITIS
     Dosage: 1000 MG, DAYS 1+15
     Route: 042
     Dates: start: 20061121

REACTIONS (5)
  - ANXIETY [None]
  - ASTHENIA [None]
  - DEPRESSION [None]
  - SLEEP DISORDER [None]
  - SUICIDAL IDEATION [None]
